FAERS Safety Report 5611902-2 (Version None)
Quarter: 2008Q1

REPORT INFORMATION
  Report Type: 
  Country: None (occurrence: None)
  Receive Date: 20080128
  Receipt Date: 20060823
  Transmission Date: 20080703
  Serious: Yes (Other)
  Sender: FDA-Public Use
  Company Number: DSA_28629_2006

PATIENT
  Age: 49 Year
  Sex: Female

DRUGS (3)
  1. DILTIAZEM HCL [Suspect]
     Dosage: 360 MG QD ORAL, 240 MG QD ORAL
     Route: 048
     Dates: start: 20050601, end: 20051001
  2. DILTIAZEM HCL [Suspect]
     Dosage: 360 MG QD ORAL, 240 MG QD ORAL
     Route: 048
     Dates: start: 20051001, end: 20060501
  3. COVERSYL [Concomitant]

REACTIONS (7)
  - ATRIOVENTRICULAR BLOCK FIRST DEGREE [None]
  - BLOOD PRESSURE DECREASED [None]
  - FATIGUE [None]
  - JOINT SWELLING [None]
  - MYOCARDIAL ISCHAEMIA [None]
  - OEDEMA PERIPHERAL [None]
  - PULMONARY CONGESTION [None]
